FAERS Safety Report 20330981 (Version 1)
Quarter: 2022Q1

REPORT INFORMATION
  Report Type: Spontaneous
  Country: US (occurrence: US)
  Receive Date: 20220113
  Receipt Date: 20220113
  Transmission Date: 20220423
  Serious: No
  Sender: FDA-Public Use
  Company Number: US-ORGANON-O2112USA001966

PATIENT
  Sex: Female
  Weight: 54.875 kg

DRUGS (7)
  1. NASONEX [Suspect]
     Active Substance: MOMETASONE FUROATE
     Dosage: 2 SPRAYS EVERY DAY BY INTRANASAL ROUTE AS DIRECTED
     Dates: start: 20200430
  2. DEVICE [Suspect]
     Active Substance: DEVICE
  3. AMITRIPTYLINE [Concomitant]
     Active Substance: AMITRIPTYLINE
     Dosage: 1 TABLET BY MOUTH ONCE DAILY AS NEEDED
     Route: 048
     Dates: start: 20210522
  4. AVIANE [Concomitant]
     Active Substance: ETHINYL ESTRADIOL\LEVONORGESTREL
     Dosage: 0.1 MG-20 MCG 1 TABLET BY MOUTH ONCE DAILY
     Route: 048
     Dates: start: 20210524
  5. CYCLOBENZAPRINE [Concomitant]
     Active Substance: CYCLOBENZAPRINE
     Dosage: 1 TABLET BY MOUTH TWICE DAILY
     Route: 048
     Dates: start: 20210511
  6. METHYLPREDNISOLONE [Concomitant]
     Active Substance: METHYLPREDNISOLONE
     Dosage: TAKE AS DIRECTED
     Dates: start: 20210511
  7. SPRINTEC [Concomitant]
     Active Substance: ETHINYL ESTRADIOL\NORGESTIMATE
     Dosage: 1 TABLET BY MOUTH ONCE DAILY
     Route: 048
     Dates: start: 20200928

REACTIONS (2)
  - Eye disorder [Unknown]
  - Hypertension [Unknown]
